FAERS Safety Report 5021781-2 (Version None)
Quarter: 2006Q2

REPORT INFORMATION
  Report Type: 
  Country: None (occurrence: None)
  Receive Date: 20060605
  Receipt Date: 20060519
  Transmission Date: 20061013
  Serious: Yes (Hospitalization)
  Sender: FDA-Public Use
  Company Number: US200605004817

PATIENT
  Sex: Male

DRUGS (1)
  1. CYMBALTA [Suspect]
     Dosage: 50 MG ORAL
     Route: 048
     Dates: start: 20060210, end: 20060507

REACTIONS (2)
  - HYPOAESTHESIA [None]
  - PARAESTHESIA [None]
